FAERS Safety Report 21115206 (Version 1)
Quarter: 2022Q3

REPORT INFORMATION
  Report Type: Spontaneous
  Country: US (occurrence: US)
  Receive Date: 20220721
  Receipt Date: 20220721
  Transmission Date: 20221027
  Serious: Yes (Other)
  Sender: FDA-Public Use
  Company Number: US-GILEAD-2022-0589839

PATIENT
  Age: 67 Year
  Sex: Male
  Weight: 90.6 kg

DRUGS (1)
  1. TECARTUS [Suspect]
     Active Substance: BREXUCABTAGENE AUTOLEUCEL
     Indication: B-cell type acute leukaemia
     Dosage: UNK, ONCE
     Route: 042
     Dates: start: 20220430, end: 20220430

REACTIONS (11)
  - Hallucination, visual [Recovered/Resolved]
  - Immune effector cell-associated neurotoxicity syndrome [Recovered/Resolved]
  - Cytokine release syndrome [Recovered/Resolved]
  - Fatigue [Not Recovered/Not Resolved]
  - Headache [Recovered/Resolved]
  - Alanine aminotransferase abnormal [Recovered/Resolved]
  - Chills [Recovered/Resolved]
  - Tremor [Not Recovered/Not Resolved]
  - Incontinence [Not Recovered/Not Resolved]
  - Memory impairment [Recovered/Resolved]
  - Myalgia [Recovered/Resolved]

NARRATIVE: CASE EVENT DATE: 20220504
